FAERS Safety Report 9175073 (Version 1)
Quarter: 2013Q1

REPORT INFORMATION
  Report Type: Spontaneous
  Country: IT (occurrence: IT)
  Receive Date: 20130320
  Receipt Date: 20130320
  Transmission Date: 20140127
  Serious: Yes (Hospitalization)
  Sender: FDA-Public Use
  Company Number: IT-BAYER-2013-034171

PATIENT
  Age: 92 Year
  Sex: Male

DRUGS (3)
  1. CARDIOASPIRIN [Suspect]
     Dosage: 100 MG, QD
     Route: 048
     Dates: start: 20101202, end: 20130226
  2. NITROGLYCERIN [Concomitant]
     Dosage: UNK
  3. ESOPRAL [Concomitant]

REACTIONS (3)
  - Haematemesis [Recovered/Resolved]
  - Gastritis haemorrhagic [Recovered/Resolved]
  - Ulcer [Recovered/Resolved]
